FAERS Safety Report 7405054-6 (Version None)
Quarter: 2011Q1

REPORT INFORMATION
  Report Type: 
  Country: None (occurrence: None)
  Receive Date: 20110331
  Receipt Date: 20101011
  Transmission Date: 20110831
  Serious: Yes (Life-Threatening, Hospitalization)
  Sender: FDA-Public Use
  Company Number: 2011MA002863

PATIENT
  Age: 74 Year
  Sex: Female

DRUGS (2)
  1. CARBOPLATIN [Concomitant]
  2. PACLITAXEL [Suspect]
     Indication: OVARIAN CANCER
     Dates: start: 20100830, end: 20100830

REACTIONS (2)
  - RESPIRATORY FAILURE [None]
  - PNEUMONIA [None]
